FAERS Safety Report 9515984 (Version 1)
Quarter: 2013Q3

REPORT INFORMATION
  Report Type: Spontaneous
  Country: GR (occurrence: GR)
  Receive Date: 20130911
  Receipt Date: 20130911
  Transmission Date: 20140515
  Serious: Yes (Other)
  Sender: FDA-Public Use
  Company Number: GR-BAYER-2013-106279

PATIENT
  Age: 40 Year
  Sex: Female

DRUGS (1)
  1. AVELOX [Suspect]
     Indication: LOBAR PNEUMONIA
     Dosage: UNK
     Route: 048
     Dates: start: 201308

REACTIONS (4)
  - Acute psychosis [Recovering/Resolving]
  - Schizophrenia [Recovering/Resolving]
  - Dizziness [None]
  - Asthenia [None]
